FAERS Safety Report 15749737 (Version 4)
Quarter: 2019Q2

REPORT INFORMATION
  Report Type: Report from Study
  Country: DE (occurrence: DE)
  Receive Date: 20181221
  Receipt Date: 20190515
  Transmission Date: 20190711
  Serious: Yes (Other)
  Sender: FDA-Public Use
  Company Number: DE-ROCHE-2234716

PATIENT
  Age: 48 Year
  Sex: Female

DRUGS (4)
  1. L-THYROX [Concomitant]
     Active Substance: LEVOTHYROXINE SODIUM
     Route: 065
  2. FEMOSTON [Concomitant]
     Active Substance: DYDROGESTERONE\ESTRADIOL
  3. SERTRALIN [SERTRALINE] [Concomitant]
     Route: 065
  4. OCREVUS [Suspect]
     Active Substance: OCRELIZUMAB
     Indication: SECONDARY PROGRESSIVE MULTIPLE SCLEROSIS
     Route: 042
     Dates: start: 20181121

REACTIONS (16)
  - Nausea [Recovered/Resolved]
  - Eye irritation [Recovered/Resolved]
  - Cough [Recovered/Resolved]
  - Intentional product use issue [Unknown]
  - Chills [Recovered/Resolved]
  - Rash [Not Recovered/Not Resolved]
  - C-reactive protein increased [Not Recovered/Not Resolved]
  - Von Willebrand^s disease [Not Recovered/Not Resolved]
  - Vertigo positional [Not Recovered/Not Resolved]
  - Off label use [Unknown]
  - Nausea [Not Recovered/Not Resolved]
  - Influenza [Recovered/Resolved]
  - Oral herpes [Recovered/Resolved]
  - Headache [Not Recovered/Not Resolved]
  - Pyrexia [Recovered/Resolved]
  - Nasopharyngitis [Recovered/Resolved]

NARRATIVE: CASE EVENT DATE: 20181122
